FAERS Safety Report 12694545 (Version 1)
Quarter: 2016Q3

REPORT INFORMATION
  Report Type: Spontaneous
  Country: FR (occurrence: FR)
  Receive Date: 20160829
  Receipt Date: 20160829
  Transmission Date: 20161109
  Serious: Yes (Other)
  Sender: FDA-Public Use
  Company Number: FR-MYLANLABS-2016M1035158

PATIENT

DRUGS (1)
  1. ESOMEPRAZOLO MYLAN 20 MG CAPSULE RIGIDE GASTRORESISTENTI [Suspect]
     Active Substance: ESOMEPRAZOLE
     Indication: BARRETT^S OESOPHAGUS
     Dosage: 1 DF, BID
     Route: 048
     Dates: start: 20151001, end: 20160705

REACTIONS (6)
  - Muscle spasms [None]
  - Migraine with aura [None]
  - Depressive symptom [Recovering/Resolving]
  - Myalgia [Unknown]
  - Anxiety [Recovering/Resolving]
  - Dyspnoea [Recovered/Resolved]

NARRATIVE: CASE EVENT DATE: 2016
